FAERS Safety Report 8188445 (Version 4)
Quarter: 2012Q4

REPORT INFORMATION
  Report Type: 
  Country: US (occurrence: US)
  Receive Date: 20111019
  Receipt Date: 20121031
  Transmission Date: 20130627
  Serious: Yes (Death)
  Sender: FDA-Public Use
  Company Number: US-JNJFOC-20111005707

PATIENT
  Sex: Male
  Weight: 86.18 kg

DRUGS (3)
  1. TYLENOL [Suspect]
     Route: 048
  2. TYLENOL [Suspect]
     Indication: PRODUCT USED FOR UNKNOWN INDICATION
     Route: 048
  3. FLAXSEED OIL [Concomitant]

REACTIONS (7)
  - Hepatic failure [Fatal]
  - Multi-organ failure [Fatal]
  - Overdose [Fatal]
  - Drug abuse [Fatal]
  - Continuous haemodiafiltration [None]
  - Cardiogenic shock [None]
  - Metabolic acidosis [None]
